FAERS Safety Report 8578978-4 (Version None)
Quarter: 2012Q3

REPORT INFORMATION
  Report Type: 
  Country: None (occurrence: None)
  Receive Date: 20120808
  Receipt Date: 20120803
  Transmission Date: 20120928
  Serious: Yes (Other)
  Sender: FDA-Public Use
  Company Number: GB-PFIZER INC-2012190301

PATIENT
  Sex: Female

DRUGS (2)
  1. DEPO-PROVERA [Suspect]
  2. THERAPEUTIC RADIOPHARMACEUTICALS [Interacting]

REACTIONS (2)
  - HAEMORRHAGE [None]
  - RADIATION INTERACTION [None]
